FAERS Safety Report 7397821-2 (Version None)
Quarter: 2011Q2

REPORT INFORMATION
  Report Type: 
  Country: None (occurrence: None)
  Receive Date: 20110406
  Receipt Date: 20110329
  Transmission Date: 20111010
  Serious: Yes (Other)
  Sender: FDA-Public Use
  Company Number: AT-BAXTER-2011BH009032

PATIENT

DRUGS (6)
  1. VINCRISTINE [Suspect]
     Indication: NEUROBLASTOMA
     Route: 065
  2. CARBOPLATIN [Suspect]
     Indication: NEUROBLASTOMA
     Route: 065
  3. ETOPOSIDE [Suspect]
     Indication: NEUROBLASTOMA
     Route: 065
  4. CISPLATIN [Suspect]
     Indication: NEUROBLASTOMA
     Route: 065
  5. GRANULOCYTE COLONY STIMULATING FACTOR [Concomitant]
     Indication: PROPHYLAXIS
  6. CYCLOPHOSPHAMIDE [Suspect]
     Indication: NEUROBLASTOMA
     Route: 065

REACTIONS (1)
  - ENTEROBACTER INFECTION [None]
